FAERS Safety Report 17994501 (Version 1)
Quarter: 2020Q3

REPORT INFORMATION
  Report Type: Spontaneous
  Country: CZ (occurrence: CZ)
  Receive Date: 20200708
  Receipt Date: 20200708
  Transmission Date: 20201103
  Serious: Yes (Other)
  Sender: FDA-Public Use
  Company Number: CZ-ACCORD-189380

PATIENT
  Age: 54 Year

DRUGS (2)
  1. DOCETAXEL ACCORD [Suspect]
     Active Substance: DOCETAXEL
     Indication: CHEMOTHERAPY
  2. DOCETAXEL ACCORD [Suspect]
     Active Substance: DOCETAXEL
     Indication: CHEMOTHERAPY

REACTIONS (2)
  - Toxic skin eruption [Unknown]
  - Neuropathy peripheral [Unknown]

NARRATIVE: CASE EVENT DATE: 2020
